FAERS Safety Report 9317984 (Version 1)
Quarter: 2013Q2

REPORT INFORMATION
  Report Type: Spontaneous
  Country: PL (occurrence: PL)
  Receive Date: 20130530
  Receipt Date: 20130530
  Transmission Date: 20140414
  Serious: Yes (Hospitalization)
  Sender: FDA-Public Use
  Company Number: PL-SANOFI-AVENTIS-2013SA051062

PATIENT
  Age: 63 Year
  Sex: Female
  Weight: 67 kg

DRUGS (2)
  1. LOKREN [Suspect]
     Indication: HYPERTENSION
     Route: 048
     Dates: end: 20120909
  2. TERTENSIF - SLOW RELEASE [Concomitant]
     Indication: HYPERTENSION

REACTIONS (2)
  - Loss of consciousness [Recovered/Resolved]
  - Sinus bradycardia [Recovered/Resolved]
